FAERS Safety Report 5515943-5 (Version None)
Quarter: 2007Q4

REPORT INFORMATION
  Report Type: 
  Country: None (occurrence: None)
  Receive Date: 20071109
  Receipt Date: 20071029
  Transmission Date: 20080405
  Serious: Yes (Hospitalization, Other)
  Sender: FDA-Public Use
  Company Number: A-CH2007-17334

PATIENT
  Age: 25 Year
  Sex: Male

DRUGS (3)
  1. TRACLEER [Suspect]
     Indication: PULMONARY HYPERTENSION
     Dosage: 62.5 MG, BID, ORAL
     Route: 048
     Dates: start: 20070705
  2. JODTHYROX (POTASSIUM IODIDE, LEVOTHYROXINE SODIUM) [Concomitant]
  3. ISOPTIN [Concomitant]

REACTIONS (3)
  - HAEMOGLOBIN ABNORMAL [None]
  - HYPOGLYCAEMIA [None]
  - RIGHT VENTRICULAR FAILURE [None]
